FAERS Safety Report 4635989-9 (Version None)
Quarter: 2005Q2

REPORT INFORMATION
  Report Type: 
  Country: None (occurrence: None)
  Receive Date: 20050415
  Receipt Date: 20040528
  Transmission Date: 20051028
  Serious: Yes (Life-Threatening, Hospitalization, Disabling, Other)
  Sender: FDA-Public Use
  Company Number: 200411865JP

PATIENT
  Age: 41 Year
  Sex: Male
  Weight: 48 kg

DRUGS (3)
  1. LANTUS [Suspect]
     Indication: DIABETES MELLITUS
     Route: 058
     Dates: start: 20031216, end: 20040527
  2. OPTIPEN (INSULIN PUMP) [Suspect]
     Dates: start: 20031216, end: 20040527
  3. BASEN [Concomitant]
     Indication: BLOOD GLUCOSE ABNORMAL
     Dosage: FREQUENCY: BEFORE MEALS
     Route: 048
     Dates: start: 20030605, end: 20040526

REACTIONS (17)
  - ALANINE AMINOTRANSFERASE INCREASED [None]
  - ASCITES [None]
  - ASPARTATE AMINOTRANSFERASE INCREASED [None]
  - BENIGN PROSTATIC HYPERPLASIA [None]
  - BLOOD LACTATE DEHYDROGENASE INCREASED [None]
  - FEAR [None]
  - FIBROSIS [None]
  - HAEMOSIDEROSIS [None]
  - HEPATIC ATROPHY [None]
  - HEPATIC FUNCTION ABNORMAL [None]
  - HEPATOCELLULAR DAMAGE [None]
  - HEPATOMEGALY [None]
  - HYPOGLYCAEMIC COMA [None]
  - LIVER DISORDER [None]
  - MEDICATION ERROR [None]
  - PSYCHOTIC DISORDER [None]
  - PYREXIA [None]
